FAERS Safety Report 20102972 (Version 1)
Quarter: 2021Q4

REPORT INFORMATION
  Report Type: Spontaneous
  Country: US (occurrence: None)
  Receive Date: 20211122
  Receipt Date: 20211122
  Transmission Date: 20220303
  Serious: No
  Sender: FDA-Public Use
  Company Number: None

PATIENT

DRUGS (1)
  1. BUTRANS [Suspect]
     Active Substance: BUPRENORPHINE
     Route: 061

REACTIONS (4)
  - Inappropriate schedule of product administration [None]
  - Product communication issue [None]
  - Transcription medication error [None]
  - Product communication issue [None]
